FAERS Safety Report 5469226-2 (Version None)
Quarter: 2007Q3

REPORT INFORMATION
  Report Type: 
  Country: None (occurrence: None)
  Receive Date: 20070925
  Receipt Date: 20070925
  Transmission Date: 20080115
  Serious: Yes (Other)
  Sender: FDA-Public Use
  Company Number: None

PATIENT
  Age: 50 Year
  Sex: Male
  Weight: 95.2554 kg

DRUGS (1)
  1. ABILIFY [Suspect]
     Indication: PSYCHOTIC DISORDER
     Dosage: 10 MG  DAILY/FIRST WEEK  PO;  20 MG PER DAY  PO
     Route: 048
     Dates: start: 20070917, end: 20070923

REACTIONS (30)
  - AGITATION [None]
  - ANOREXIA [None]
  - ANXIETY [None]
  - CHEST DISCOMFORT [None]
  - CONFUSIONAL STATE [None]
  - CONSTIPATION [None]
  - COUGH [None]
  - DEPRESSION [None]
  - DIARRHOEA [None]
  - DIZZINESS [None]
  - DYSGEUSIA [None]
  - DYSKINESIA [None]
  - FATIGUE [None]
  - FEELING ABNORMAL [None]
  - HALLUCINATIONS, MIXED [None]
  - HEADACHE [None]
  - HEART RATE IRREGULAR [None]
  - ILL-DEFINED DISORDER [None]
  - INSOMNIA [None]
  - MUSCLE TIGHTNESS [None]
  - MYALGIA [None]
  - NAUSEA [None]
  - NIGHTMARE [None]
  - PARANOIA [None]
  - PHARYNGOLARYNGEAL PAIN [None]
  - RESTLESSNESS [None]
  - RHINORRHOEA [None]
  - THIRST [None]
  - TREMOR [None]
  - VISION BLURRED [None]
